FAERS Safety Report 10427682 (Version 3)
Quarter: 2015Q2

REPORT INFORMATION
  Report Type: Report from Study
  Country: CA (occurrence: CA)
  Receive Date: 20140903
  Receipt Date: 20150619
  Transmission Date: 20150821
  Serious: Yes (Other)
  Sender: FDA-Public Use
  Company Number: PHHY2014CA008643

PATIENT
  Age: 50 Year
  Sex: Female

DRUGS (4)
  1. ESTRACE [Concomitant]
     Active Substance: ESTRADIOL
     Indication: MENOPAUSAL SYMPTOMS
     Route: 065
  2. RAMIPRIL. [Concomitant]
     Active Substance: RAMIPRIL
     Indication: PRODUCT USED FOR UNKNOWN INDICATION
     Route: 065
  3. TASIGNA [Suspect]
     Active Substance: NILOTINIB
     Indication: CHRONIC MYELOID LEUKAEMIA
     Dosage: 300 MG, BID
     Route: 048
     Dates: start: 201401
  4. LIPITOR [Concomitant]
     Active Substance: ATORVASTATIN CALCIUM
     Indication: PRODUCT USED FOR UNKNOWN INDICATION
     Route: 065

REACTIONS (18)
  - Peripheral swelling [Unknown]
  - Contusion [Unknown]
  - Abdominal pain [Unknown]
  - Musculoskeletal pain [Not Recovered/Not Resolved]
  - Chills [Unknown]
  - Blood pressure increased [Unknown]
  - Haematoma [Unknown]
  - Increased tendency to bruise [Unknown]
  - Limb injury [Unknown]
  - Musculoskeletal chest pain [Unknown]
  - Gait disturbance [Unknown]
  - Nausea [Unknown]
  - Arthralgia [Not Recovered/Not Resolved]
  - Fatigue [Unknown]
  - Pain [Unknown]
  - Spinal pain [Not Recovered/Not Resolved]
  - Angina pectoris [Unknown]
  - Back pain [Unknown]

NARRATIVE: CASE EVENT DATE: 20150606
